FAERS Safety Report 4350978-X (Version None)
Quarter: 2004Q2

REPORT INFORMATION
  Report Type: 
  Country: None (occurrence: None)
  Receive Date: 20040427
  Receipt Date: 20020716
  Transmission Date: 20050107
  Serious: Yes (Hospitalization)
  Sender: FDA-Public Use
  Company Number: 2002CG01112

PATIENT
  Age: 77 Year
  Sex: Female

DRUGS (4)
  1. XYLOCAINE [Suspect]
     Dates: start: 20020312
  2. BETADINE [Suspect]
     Dates: start: 20020312
  3. STERDEX [Suspect]
     Dates: start: 20020312
  4. BSS [Suspect]
     Dates: start: 20020312

REACTIONS (4)
  - OFF LABEL USE [None]
  - POST PROCEDURAL COMPLICATION [None]
  - STAPHYLOCOCCAL INFECTION [None]
  - UVEITIS [None]
